FAERS Safety Report 18527563 (Version 1)
Quarter: 2020Q4

REPORT INFORMATION
  Report Type: Spontaneous
  Country: US (occurrence: US)
  Receive Date: 20201120
  Receipt Date: 20201120
  Transmission Date: 20210114
  Serious: Yes (Hospitalization)
  Sender: FDA-Public Use
  Company Number: None

PATIENT
  Age: 72 Year
  Sex: Male
  Weight: 63.3 kg

DRUGS (1)
  1. DECITABINE (5AZA2 DEOXYCYTIDINE) [Suspect]
     Active Substance: DECITABINE
     Dates: end: 20201030

REACTIONS (3)
  - Inflammation [None]
  - Proctalgia [None]
  - Rectal fissure [None]

NARRATIVE: CASE EVENT DATE: 20201118
